FAERS Safety Report 10054066 (Version 1)
Quarter: 2014Q2

REPORT INFORMATION
  Report Type: Spontaneous
  Country: DK (occurrence: DK)
  Receive Date: 20140402
  Receipt Date: 20140402
  Transmission Date: 20141212
  Serious: Yes (Hospitalization)
  Sender: FDA-Public Use
  Company Number: DK-FRI-1000066025

PATIENT
  Age: 54 Year
  Sex: Male

DRUGS (7)
  1. ESCITALOPRAM [Suspect]
     Indication: DEPRESSION
     Route: 048
  2. ESCITALOPRAM [Suspect]
     Route: 048
  3. ESCITALOPRAM [Suspect]
     Indication: DEPRESSION
     Route: 048
     Dates: end: 20100322
  4. MODIODAL [Suspect]
     Indication: FATIGUE
     Dosage: 100 MG
     Route: 048
     Dates: start: 20100209, end: 20100223
  5. MODIODAL [Suspect]
     Route: 048
     Dates: start: 20100224, end: 20100322
  6. CYMBALTA [Suspect]
     Indication: ANXIETY
     Route: 048
     Dates: start: 20091021, end: 20100322
  7. ALOPAM [Concomitant]
     Indication: PRODUCT USED FOR UNKNOWN INDICATION
     Route: 048

REACTIONS (17)
  - Hepatic failure [Unknown]
  - Serotonin syndrome [Recovered/Resolved]
  - Myalgia [Unknown]
  - Hypokinesia [Unknown]
  - Depressed level of consciousness [Recovered/Resolved]
  - Tremor [Unknown]
  - Muscle tightness [Unknown]
  - Fatigue [Unknown]
  - Hypoaesthesia [Unknown]
  - Motor dysfunction [Unknown]
  - Lethargy [Unknown]
  - Musculoskeletal stiffness [Unknown]
  - Muscle contractions involuntary [Unknown]
  - Hepatic encephalopathy [Unknown]
  - Muscle spasms [Unknown]
  - Restlessness [Unknown]
  - Prescribed overdose [Unknown]
